FAERS Safety Report 18428930 (Version 2)
Quarter: 2020Q4

REPORT INFORMATION
  Report Type: Report from Study
  Country: None (occurrence: US)
  Receive Date: 20201026
  Receipt Date: 20201113
  Transmission Date: 20210114
  Serious: Yes (Hospitalization)
  Sender: FDA-Public Use
  Company Number: US-ABBVIE-20P-163-3622481-00

PATIENT
  Age: 37 Year
  Sex: Male

DRUGS (13)
  1. IBRUTINIB [Suspect]
     Active Substance: IBRUTINIB
     Dosage: CYCLE 5, DAY 1
     Route: 048
     Dates: start: 20201027
  2. VALTREX [Concomitant]
     Active Substance: VALACYCLOVIR HYDROCHLORIDE
     Indication: PRODUCT USED FOR UNKNOWN INDICATION
     Route: 048
  3. OBINUTUZUMAB. [Concomitant]
     Active Substance: OBINUTUZUMAB
     Indication: DIFFUSE LARGE B-CELL LYMPHOMA
     Dosage: D1-2
     Route: 042
     Dates: start: 20200710, end: 20200926
  4. PREDNISONE. [Concomitant]
     Active Substance: PREDNISONE
     Dosage: CYCLE 5, DAY 1
     Route: 048
     Dates: start: 20201027
  5. IBRUTINIB [Suspect]
     Active Substance: IBRUTINIB
     Indication: DIFFUSE LARGE B-CELL LYMPHOMA
     Dosage: DAYS 1-14
     Route: 048
     Dates: start: 20200710, end: 20201008
  6. OBINUTUZUMAB. [Concomitant]
     Active Substance: OBINUTUZUMAB
     Dosage: CYCLE 5, DAY 1
     Route: 042
     Dates: start: 20201024
  7. VENETOCLAX. [Suspect]
     Active Substance: VENETOCLAX
     Dosage: CYCLE 5, DAY 1
     Route: 048
     Dates: start: 20201027
  8. PREDNISONE. [Concomitant]
     Active Substance: PREDNISONE
     Indication: DIFFUSE LARGE B-CELL LYMPHOMA
     Dosage: DAYS 1-7
     Route: 048
     Dates: start: 20200710, end: 20201001
  9. LENALIDOMIDE [Concomitant]
     Active Substance: LENALIDOMIDE
     Indication: DIFFUSE LARGE B-CELL LYMPHOMA
     Dosage: DAYS 1-14
     Route: 048
     Dates: start: 20200710, end: 20201008
  10. VENETOCLAX. [Suspect]
     Active Substance: VENETOCLAX
     Indication: DIFFUSE LARGE B-CELL LYMPHOMA
     Dosage: CYCLE 1, D2-14
     Route: 048
     Dates: start: 20200711, end: 20201008
  11. BACLOFEN. [Concomitant]
     Active Substance: BACLOFEN
     Indication: PRODUCT USED FOR UNKNOWN INDICATION
     Route: 048
  12. LENALIDOMIDE [Concomitant]
     Active Substance: LENALIDOMIDE
     Dosage: DAYS 1-14
     Route: 048
     Dates: start: 20201027
  13. ATOVAQUONE. [Concomitant]
     Active Substance: ATOVAQUONE
     Indication: PRODUCT USED FOR UNKNOWN INDICATION
     Route: 048

REACTIONS (4)
  - Pneumonia [Not Recovered/Not Resolved]
  - Soft tissue infection [Not Recovered/Not Resolved]
  - Bacteraemia [Not Recovered/Not Resolved]
  - Central nervous system infection [Not Recovered/Not Resolved]

NARRATIVE: CASE EVENT DATE: 20201015
